FAERS Safety Report 15111799 (Version 1)
Quarter: 2018Q3

REPORT INFORMATION
  Report Type: Spontaneous
  Country: US (occurrence: US)
  Receive Date: 20180705
  Receipt Date: 20180705
  Transmission Date: 20181010
  Serious: Yes (Hospitalization)
  Sender: FDA-Public Use
  Company Number: US-VERTEX PHARMACEUTICALS-2017-000346

PATIENT
  Age: 14 Year
  Sex: Female

DRUGS (10)
  1. SINGULAIR [Concomitant]
     Active Substance: MONTELUKAST SODIUM
  2. CREON [Concomitant]
     Active Substance: PANCRELIPASE AMYLASE\PANCRELIPASE LIPASE\PANCRELIPASE PROTEASE
  3. ORKAMBI [Suspect]
     Active Substance: IVACAFTOR\LUMACAFTOR
     Dosage: REDUCED DOSE
     Route: 048
     Dates: start: 20170425, end: 20180123
  4. VERAMYST [Concomitant]
     Active Substance: FLUTICASONE FUROATE
  5. PULMOZYME [Concomitant]
     Active Substance: DORNASE ALFA
  6. XOPENEX HFA [Concomitant]
     Active Substance: LEVALBUTEROL TARTRATE
  7. ORKAMBI [Suspect]
     Active Substance: IVACAFTOR\LUMACAFTOR
     Indication: CYSTIC FIBROSIS
     Dosage: 2 TABLETS (200/125MG), BID
     Route: 048
     Dates: start: 20150828, end: 20160901
  8. PREVACID [Concomitant]
     Active Substance: LANSOPRAZOLE
  9. DULERA [Concomitant]
     Active Substance: FORMOTEROL FUMARATE DIHYDRATE\MOMETASONE FUROATE
  10. HYPERSAL [Concomitant]

REACTIONS (7)
  - Malaise [Unknown]
  - Rash papular [Not Recovered/Not Resolved]
  - Infective pulmonary exacerbation of cystic fibrosis [Recovered/Resolved]
  - Drug ineffective [Unknown]
  - Pain [Unknown]
  - Dizziness [Unknown]
  - Dizziness exertional [Recovered/Resolved]

NARRATIVE: CASE EVENT DATE: 2015
